FAERS Safety Report 8020229-3 (Version None)
Quarter: 2012Q1

REPORT INFORMATION
  Report Type: 
  Country: None (occurrence: None)
  Receive Date: 20120103
  Receipt Date: 20110923
  Transmission Date: 20120608
  Serious: Yes (Hospitalization)
  Sender: FDA-Public Use
  Company Number: US-ABBOTT-11P-163-0857455-00

PATIENT
  Sex: Female
  Weight: 60.836 kg

DRUGS (4)
  1. ACEON [Suspect]
     Indication: HYPERTENSION
     Dosage: ONCE DAILY AS NEEDED
     Route: 048
     Dates: start: 20060101, end: 20101101
  2. ACEON [Suspect]
     Indication: TRANSIENT ISCHAEMIC ATTACK
     Dosage: CUT TABLET IN HALF
     Route: 048
     Dates: start: 20101101, end: 20110401
  3. ASPIRIN [Concomitant]
     Indication: PRODUCT USED FOR UNKNOWN INDICATION
     Route: 048
  4. ESTRACE [Concomitant]
     Indication: HORMONE REPLACEMENT THERAPY
     Dosage: TOPICAL VAGINAL CREAM TWICE A WEEK
     Route: 061

REACTIONS (2)
  - THERAPEUTIC RESPONSE INCREASED [None]
  - DIZZINESS [None]
